FAERS Safety Report 20956338 (Version 2)
Quarter: 2022Q2

REPORT INFORMATION
  Report Type: Report from Study
  Country: GB (occurrence: GB)
  Receive Date: 20220614
  Receipt Date: 20220621
  Transmission Date: 20220721
  Serious: Yes (Hospitalization, Other)
  Sender: FDA-Public Use
  Company Number: GB-GLAXOSMITHKLINE-GB2020EME215053

PATIENT

DRUGS (1)
  1. MEPOLIZUMAB [Suspect]
     Active Substance: MEPOLIZUMAB
     Indication: Asthma
     Dosage: 100 MG, Z EVERY 4 WEEKS
     Route: 058
     Dates: start: 20200506

REACTIONS (18)
  - Loss of consciousness [Unknown]
  - Hip fracture [Unknown]
  - Ankle fracture [Unknown]
  - Diabetes mellitus [Unknown]
  - Dyspnoea [Unknown]
  - Mobility decreased [Unknown]
  - Hip surgery [Unknown]
  - Somnolence [Unknown]
  - Decreased appetite [Unknown]
  - Thirst decreased [Unknown]
  - Insomnia [Unknown]
  - Vomiting [Unknown]
  - Weight decreased [Unknown]
  - Stress [Unknown]
  - Foot fracture [Unknown]
  - Memory impairment [Unknown]
  - Inappropriate schedule of product administration [Unknown]
  - Product dose omission issue [Unknown]

NARRATIVE: CASE EVENT DATE: 20220601
